FAERS Safety Report 20225650 (Version 1)
Quarter: 2021Q4

REPORT INFORMATION
  Report Type: Spontaneous
  Country: US (occurrence: US)
  Receive Date: 20211224
  Receipt Date: 20211224
  Transmission Date: 20220303
  Serious: Yes (Death, Hospitalization, Other)
  Sender: FDA-Public Use
  Company Number: US-ORGANON-O2112USA001878

PATIENT
  Age: 66 Year
  Sex: Female

DRUGS (1)
  1. REMERON [Suspect]
     Active Substance: MIRTAZAPINE
     Dosage: 15 MILLIGRAM (20 TABLETS)
     Route: 048

REACTIONS (3)
  - Suspected suicide [Fatal]
  - Cardio-respiratory arrest [Unknown]
  - Intentional overdose [Fatal]
